FAERS Safety Report 9354785 (Version 4)
Quarter: 2014Q1

REPORT INFORMATION
  Report Type: Spontaneous
  Country: IE (occurrence: IE)
  Receive Date: 20130619
  Receipt Date: 20140109
  Transmission Date: 20141002
  Serious: Yes (Hospitalization, Other)
  Sender: FDA-Public Use
  Company Number: IE-AMGEN-IRLSP2013042465

PATIENT
  Age: 61 Year
  Sex: Female

DRUGS (3)
  1. PROLIA [Suspect]
     Indication: OSTEOPOROSIS POSTMENOPAUSAL
     Dosage: 60 MG, Q6MO
     Route: 058
     Dates: start: 20101221
  2. AMITRIPTYLINE [Concomitant]
  3. VITAMIN D                          /00107901/ [Concomitant]
     Dosage: 8000 IU, QD

REACTIONS (6)
  - Liver disorder [Recovered/Resolved]
  - Cellulitis [Recovered/Resolved]
  - Arthropod bite [Recovered/Resolved]
  - Infection [Unknown]
  - C-reactive protein increased [Recovered/Resolved]
  - Lipoedema [Unknown]
